FAERS Safety Report 9780644 (Version 1)
Quarter: 2013Q4

REPORT INFORMATION
  Report Type: Spontaneous
  Country: GB (occurrence: GB)
  Receive Date: 20131224
  Receipt Date: 20131224
  Transmission Date: 20140711
  Serious: Yes (Hospitalization)
  Sender: FDA-Public Use
  Company Number: GB-009507513-1312GBR010273

PATIENT
  Age: 72 Year
  Sex: Male

DRUGS (17)
  1. DEXAMETHASONE [Suspect]
     Indication: PLASMA CELL MYELOMA
     Dosage: 20 MG, UNK
     Route: 048
     Dates: start: 20130507, end: 20130527
  2. VELCADE [Suspect]
     Indication: PLASMA CELL MYELOMA
     Dosage: 1.3 MG/M2, UNK
     Route: 058
     Dates: start: 20130507
  3. ACYCLOVIR [Concomitant]
     Dosage: 1200 MG, UNK
     Route: 048
     Dates: end: 20130913
  4. ASPIRIN [Concomitant]
     Dosage: 75 MG, UNK
  5. BISOPROLOL [Concomitant]
     Dosage: 2.5 MG, UNK
     Route: 048
  6. DOXYCYCLINE [Concomitant]
     Dosage: 200 MG, UNK
     Route: 048
  7. FINASTERIDE [Concomitant]
     Dosage: 5 MG, UNK
     Route: 048
  8. LAXIDO [Concomitant]
     Dosage: UNK
  9. OMEPRAZOLE [Concomitant]
     Dosage: 20 MG, UNK
     Route: 048
  10. OXYCONTIN [Concomitant]
     Dosage: 5 MG, UNK
     Route: 048
  11. OXYNORM [Concomitant]
     Route: 048
  12. ACETAMINOPHEN [Concomitant]
     Indication: PAIN
     Dosage: 1 MG, UNK
  13. SENNA [Concomitant]
     Route: 048
  14. SERTRALINE HYDROCHLORIDE [Concomitant]
     Indication: DEPRESSION
     Dosage: 50 MG, UNK
     Route: 048
  15. SIMVASTATIN [Concomitant]
     Dosage: UNK
     Route: 048
     Dates: end: 20130911
  16. SYMBICORT [Concomitant]
  17. TIOTROPIUM BROMIDE [Concomitant]

REACTIONS (3)
  - Constipation [Recovered/Resolved]
  - Hypotension [Recovered/Resolved]
  - Lower respiratory tract infection [Recovered/Resolved]
